FAERS Safety Report 6646990-8 (Version None)
Quarter: 2010Q1

REPORT INFORMATION
  Report Type: 
  Country: None (occurrence: None)
  Receive Date: 20100323
  Receipt Date: 20100311
  Transmission Date: 20100710
  Serious: Yes (Other)
  Sender: FDA-Public Use
  Company Number: US-PFIZER INC-2010007974

PATIENT
  Sex: Male
  Weight: 95.238 kg

DRUGS (2)
  1. XALATAN [Suspect]
     Indication: OPEN ANGLE GLAUCOMA
     Dosage: 1 DROP EACH EYE BEFORE BED, 1X/DAY
     Route: 047
     Dates: start: 20070101
  2. ALPHAGAN [Concomitant]
     Dosage: THREE TIMES A DAY
     Dates: start: 19970624

REACTIONS (1)
  - INTRAOCULAR PRESSURE INCREASED [None]
